FAERS Safety Report 10512009 (Version 2)
Quarter: 2014Q4

REPORT INFORMATION
  Report Type: Spontaneous
  Country: US (occurrence: US)
  Receive Date: 20141010
  Receipt Date: 20141113
  Transmission Date: 20150528
  Serious: No
  Sender: FDA-Public Use
  Company Number: US-ASTRAZENECA-2014SE75934

PATIENT
  Age: 27592 Day
  Sex: Male

DRUGS (5)
  1. GLUCOSAMINE SULFATE [Concomitant]
     Active Substance: GLUCOSAMINE SULFATE
  2. MULTAQ [Concomitant]
     Active Substance: DRONEDARONE
  3. ATENOLOL. [Concomitant]
     Active Substance: ATENOLOL
  4. NEXIUM 24HR [Suspect]
     Active Substance: ESOMEPRAZOLE MAGNESIUM
     Indication: GASTROOESOPHAGEAL REFLUX DISEASE
     Route: 048
     Dates: start: 20140604, end: 20141003
  5. WARFARIN SODIUM. [Concomitant]
     Active Substance: WARFARIN SODIUM

REACTIONS (5)
  - Drug interaction [Not Recovered/Not Resolved]
  - Blood pressure increased [Recovered/Resolved]
  - Oedema peripheral [Not Recovered/Not Resolved]
  - Intentional product misuse [Recovered/Resolved]
  - International normalised ratio increased [Recovered/Resolved]

NARRATIVE: CASE EVENT DATE: 20140604
